FAERS Safety Report 24894938 (Version 1)
Quarter: 2025Q1

REPORT INFORMATION
  Report Type: Report from Study
  Country: AU (occurrence: AU)
  Receive Date: 20250128
  Receipt Date: 20250128
  Transmission Date: 20250408
  Serious: Yes (Other)
  Sender: ABBVIE
  Company Number: AU-ABBVIE-6098641

PATIENT
  Age: 71 Year
  Sex: Male

DRUGS (4)
  1. CARBIDOPA\LEVODOPA [Suspect]
     Active Substance: CARBIDOPA\LEVODOPA
     Indication: Parkinson^s disease
     Route: 050
  2. CARBIDOPA\LEVODOPA [Suspect]
     Active Substance: CARBIDOPA\LEVODOPA
     Route: 050
  3. SOUVENAID [Concomitant]
     Indication: Product used for unknown indication
  4. ASPIRIN [Concomitant]
     Active Substance: ASPIRIN
     Indication: Product used for unknown indication

REACTIONS (12)
  - Cerebral small vessel ischaemic disease [Unknown]
  - Pain [Unknown]
  - Intervertebral disc degeneration [Unknown]
  - Stoma site candida [Unknown]
  - Stoma site hypergranulation [Unknown]
  - Vertebral foraminal stenosis [Unknown]
  - Spinal osteoarthritis [Unknown]
  - Cerebral small vessel ischaemic disease [Unknown]
  - Freezing phenomenon [Unknown]
  - Hypertonia [Unknown]
  - Bradykinesia [Unknown]
  - Dyskinesia [Unknown]

NARRATIVE: CASE EVENT DATE: 20240101
